FAERS Safety Report 21575156 (Version 1)
Quarter: 2022Q4

REPORT INFORMATION
  Report Type: Report from Study
  Country: US (occurrence: US)
  Receive Date: 20221110
  Receipt Date: 20221110
  Transmission Date: 20230113
  Serious: No
  Sender: FDA-Public Use
  Company Number: US-ABBVIE-4137040

PATIENT
  Sex: Female

DRUGS (3)
  1. HUMIRA [Suspect]
     Active Substance: ADALIMUMAB
     Indication: Rheumatoid arthritis
     Route: 058
  2. DESONIDE [Concomitant]
     Active Substance: DESONIDE
     Indication: Product used for unknown indication
     Dosage: FORM STRENGTH: 0.05%
  3. CLOBETASOL P [Concomitant]
     Indication: Product used for unknown indication
     Dosage: FORM STRENGTH: 0.05%

REACTIONS (3)
  - Injection site vesicles [Unknown]
  - Injection site erythema [Unknown]
  - Injection site pruritus [Unknown]
